FAERS Safety Report 18089280 (Version 3)
Quarter: 2021Q2

REPORT INFORMATION
  Report Type: Spontaneous
  Country: TR (occurrence: TR)
  Receive Date: 20200730
  Receipt Date: 20210629
  Transmission Date: 20210717
  Serious: Yes (Life-Threatening, Hospitalization)
  Sender: FDA-Public Use
  Company Number: TR-TEVA-2020-TR-1805874

PATIENT
  Age: 3 Year
  Sex: Female

DRUGS (7)
  1. LEVOSIMENDAN [Suspect]
     Active Substance: LEVOSIMENDAN
     Indication: LEFT VENTRICULAR DYSFUNCTION
     Dosage: LOADING DOSE
     Route: 065
  2. DOXAZOSIN [Suspect]
     Active Substance: DOXAZOSIN MESYLATE
     Indication: CARDIAC DYSFUNCTION
     Dosage: DOSE: 0.05 MG/KG/DOSE UPON ADMISSION AND AN HOUR AFTER ADMISSION, THEN CONTINUED
     Route: 065
  3. DOPAMINE [Suspect]
     Active Substance: DOPAMINE HYDROCHLORIDE
     Indication: LEFT VENTRICULAR DYSFUNCTION
     Dosage: DOSE: 10 MCG/KG/MIN, INFUSION
     Route: 065
  4. LEVOSIMENDAN [Suspect]
     Active Substance: LEVOSIMENDAN
     Indication: LEFT VENTRICULAR DYSFUNCTION
     Dosage: MAINTENANCE DOSE CONTINUED FOR 48H
     Route: 065
  5. DOBUTAMINE [Suspect]
     Active Substance: DOBUTAMINE HYDROCHLORIDE
     Indication: LEFT VENTRICULAR DYSFUNCTION
     Dosage: DOSE: 10 MCG/KG/MIN, INFUSION
     Route: 065
  6. EPINEPHRINE. [Suspect]
     Active Substance: EPINEPHRINE
     Indication: HYPOTENSION
     Dosage: DOSE: 0.05 MCG/KG/MIN
     Route: 065
  7. MILRINONE [Suspect]
     Active Substance: MILRINONE
     Indication: HYPOTENSION
     Dosage: DOSE: 0.3 MCG/KG/MIN
     Route: 065

REACTIONS (2)
  - Drug ineffective [Unknown]
  - Off label use [Unknown]
